FAERS Safety Report 5068532-3 (Version None)
Quarter: 2006Q3

REPORT INFORMATION
  Report Type: 
  Country: None (occurrence: None)
  Receive Date: 20060802
  Receipt Date: 20051110
  Transmission Date: 20061208
  Serious: Yes (Other)
  Sender: FDA-Public Use
  Company Number: US-BRISTOL-MYERS SQUIBB COMPANY-13176664

PATIENT
  Age: 68 Year
  Sex: Male

DRUGS (6)
  1. COUMADIN [Suspect]
     Indication: ATRIAL FIBRILLATION
     Route: 048
  2. KLOR-CON [Interacting]
     Indication: MINERAL SUPPLEMENTATION
     Dosage: 4 TO 5 YEARS
     Route: 048
  3. COREG [Concomitant]
  4. LEVAQUIN [Concomitant]
     Dates: start: 20051001
  5. METRONIDAZOLE [Concomitant]
     Dates: start: 20051001
  6. TAMBOCOR [Concomitant]

REACTIONS (6)
  - ATRIAL FIBRILLATION [None]
  - BLOOD POTASSIUM DECREASED [None]
  - FAECES DISCOLOURED [None]
  - HEART RATE INCREASED [None]
  - INTERNATIONAL NORMALISED RATIO INCREASED [None]
  - MEDICATION RESIDUE [None]
